FAERS Safety Report 15341338 (Version 2)
Quarter: 2019Q2

REPORT INFORMATION
  Report Type: Spontaneous
  Country: RO (occurrence: RO)
  Receive Date: 20180831
  Receipt Date: 20190604
  Transmission Date: 20190711
  Serious: Yes (Life-Threatening, Hospitalization, Other)
  Sender: FDA-Public Use
  Company Number: PHHY2018RO080410

PATIENT
  Age: 17 Year
  Sex: Male
  Weight: 50 kg

DRUGS (27)
  1. HUMIRA [Suspect]
     Active Substance: ADALIMUMAB
     Dosage: 40 MG, Q2W
     Route: 058
     Dates: start: 20180705
  2. SIMETICON [Concomitant]
     Dosage: 2 DF, QD
     Route: 048
     Dates: start: 20180714, end: 20180831
  3. AZATHIOPRINE. [Suspect]
     Active Substance: AZATHIOPRINE
     Dosage: 150 MG, QD
     Route: 048
     Dates: start: 20161027, end: 20170130
  4. AZATHIOPRINE. [Suspect]
     Active Substance: AZATHIOPRINE
     Dosage: 50 MG, QD
     Route: 048
     Dates: start: 20180714
  5. PREDNISONE. [Concomitant]
     Active Substance: PREDNISONE
     Indication: CROHN^S DISEASE
     Dosage: 27 MG, QD
     Route: 048
     Dates: start: 20080303, end: 20081231
  6. SALOFALK [Concomitant]
     Indication: CROHN^S DISEASE
     Dosage: 2 G, QD
     Route: 048
     Dates: start: 20080131, end: 20161026
  7. SALOFALK [Concomitant]
     Dosage: 4 G, UNK
     Route: 054
  8. GRANISETRON [Concomitant]
     Active Substance: GRANISETRON
     Indication: PROPHYLAXIS OF NAUSEA AND VOMITING
     Dosage: 1 MG, QW
     Route: 048
     Dates: start: 20171115, end: 20180606
  9. AZATHIOPRINE. [Suspect]
     Active Substance: AZATHIOPRINE
     Dosage: 137 MG, QD
     Route: 048
     Dates: start: 20151106, end: 20161026
  10. AZATHIOPRINE. [Suspect]
     Active Substance: AZATHIOPRINE
     Dosage: 137 MG, QD
     Route: 048
     Dates: start: 20171001, end: 20171102
  11. HUMIRA [Suspect]
     Active Substance: ADALIMUMAB
     Indication: CROHN^S DISEASE
     Dosage: 80 MG, Q2W
     Route: 058
     Dates: start: 20180607, end: 20180621
  12. PREDNISONE. [Concomitant]
     Active Substance: PREDNISONE
     Dosage: 50.1 MG, QD
     Route: 048
     Dates: start: 20180714, end: 20180822
  13. FERINJECT [Concomitant]
     Active Substance: FERRIC CARBOXYMALTOSE
     Indication: MINERAL SUPPLEMENTATION
     Dosage: 50 MG, QW
     Route: 041
     Dates: start: 20181108
  14. PREDNISONE. [Concomitant]
     Active Substance: PREDNISONE
     Dosage: 20 MG, UNK (MEDICATION WAS PRESCRIBED AS ABOVE, BUT THE PATIENT WAS NOT COMPLIANT)
     Route: 048
  15. FOLIC ACID. [Concomitant]
     Active Substance: FOLIC ACID
     Indication: CROHN^S DISEASE
     Dosage: 1 MG, QW
     Route: 048
     Dates: start: 20171116, end: 20180607
  16. SIMETICON [Concomitant]
     Indication: PROPHYLAXIS
     Dosage: 3 DF, QD
     Route: 048
     Dates: start: 20180607, end: 20180703
  17. METHOTREXATE. [Suspect]
     Active Substance: METHOTREXATE
     Indication: CROHN^S DISEASE
     Dosage: 25 MG, QW
     Route: 065
     Dates: start: 20171115, end: 20180606
  18. OSTEOCARE [Concomitant]
     Active Substance: CALCIUM\CHOLECALCIFEROL\MAGNESIUM\ZINC
     Indication: CROHN^S DISEASE
     Dosage: 2 ?G/L, QD
     Route: 048
     Dates: start: 20160205, end: 20180629
  19. AZATHIOPRINE. [Suspect]
     Active Substance: AZATHIOPRINE
     Dosage: 162.5 MG, QD
     Route: 048
     Dates: start: 20170131, end: 20170930
  20. AZATHIOPRINE. [Suspect]
     Active Substance: AZATHIOPRINE
     Dosage: 158.3 MG, QD
     Route: 048
     Dates: start: 20171103, end: 20171209
  21. PREDNISONE. [Concomitant]
     Active Substance: PREDNISONE
     Dosage: 20 MG, QD
     Route: 048
     Dates: start: 20101208, end: 20110614
  22. SALOFALK [Concomitant]
     Dosage: 3 G, QD
     Route: 048
     Dates: start: 20161027, end: 20171102
  23. PREDNISONE. [Concomitant]
     Active Substance: PREDNISONE
     Dosage: 30 MG, QD
     Route: 048
     Dates: start: 20161019, end: 20170409
  24. SALOFALK [Concomitant]
     Dosage: 4 G, QD
     Route: 048
     Dates: start: 20171103, end: 20181107
  25. FERROUS SULFATE. [Concomitant]
     Active Substance: FERROUS SULFATE
     Indication: MINERAL SUPPLEMENTATION
     Dosage: 2 DF, QD
     Route: 048
     Dates: start: 20180607, end: 20180703
  26. AZATHIOPRINE. [Suspect]
     Active Substance: AZATHIOPRINE
     Indication: CROHN^S DISEASE
     Dosage: 125 MG, QD
     Route: 048
     Dates: start: 20150722, end: 20151105
  27. FERROUS SULFATE. [Concomitant]
     Active Substance: FERROUS SULFATE
     Dosage: 2 DF, QD
     Route: 048
     Dates: start: 20180714

REACTIONS (4)
  - Sepsis [Recovered/Resolved]
  - Pharyngitis [Recovered/Resolved]
  - Stomatitis [Recovered/Resolved]
  - Crohn^s disease [Recovered/Resolved]

NARRATIVE: CASE EVENT DATE: 20180615
